FAERS Safety Report 8538448-6 (Version None)
Quarter: 2012Q3

REPORT INFORMATION
  Report Type: 
  Country: None (occurrence: None)
  Receive Date: 20120726
  Receipt Date: 20120717
  Transmission Date: 20120928
  Serious: Yes (Hospitalization, Other)
  Sender: FDA-Public Use
  Company Number: US-RB-042577-12

PATIENT
  Age: 72 Year
  Sex: Female

DRUGS (2)
  1. DELSYM [Suspect]
     Indication: PRODUCT USED FOR UNKNOWN INDICATION
     Dosage: PATIENT TOOK PRODUCT IN MORNING.
     Route: 048
     Dates: start: 20120605
  2. COLD COM [Suspect]
     Indication: PRODUCT USED FOR UNKNOWN INDICATION
     Dates: start: 20120604

REACTIONS (3)
  - ADVERSE DRUG REACTION [None]
  - HALLUCINATION [None]
  - ANAPHYLACTIC REACTION [None]
